FAERS Safety Report 8875794 (Version 1)
Quarter: 2012Q4

REPORT INFORMATION
  Report Type: 
  Country: US (occurrence: US)
  Receive Date: 20121023
  Receipt Date: 20121023
  Transmission Date: 20130627
  Serious: Yes (Hospitalization, Other)
  Sender: FDA-Public Use
  Company Number: US-009507513-1203USA02849

PATIENT

DRUGS (6)
  1. FOSAMAX [Suspect]
     Indication: OSTEOPOROSIS
     Dosage: 10 mg, qd
     Route: 048
     Dates: start: 1998, end: 200308
  2. FOSAMAX [Suspect]
     Indication: OSTEOPENIA
     Dosage: 70 UNK, UNK
     Route: 048
     Dates: start: 200309, end: 200702
  3. FOSAMAX [Suspect]
     Indication: OSTEOPOROSIS
     Dosage: 70 mg, qd
     Route: 048
     Dates: start: 200810, end: 200909
  4. FOSAMAX PLUS D [Suspect]
     Indication: OSTEOPENIA
     Dosage: 70 mg, qd
     Route: 048
     Dates: start: 200703, end: 200809
  5. ACTONEL [Suspect]
     Indication: OSTEOPOROSIS
     Dosage: 150 mg, UNK
     Route: 048
     Dates: start: 200910, end: 201002
  6. BONIVA [Suspect]
     Indication: OSTEOPOROSIS
     Dosage: 150 mg, UNK
     Route: 048
     Dates: start: 201002, end: 201007

REACTIONS (15)
  - Femur fracture [Unknown]
  - Fall [Recovered/Resolved]
  - Vaginal prolapse repair [Unknown]
  - Tooth fracture [Unknown]
  - Femur fracture [Unknown]
  - Fracture delayed union [Unknown]
  - Patella fracture [Recovered/Resolved]
  - Vitamin D deficiency [Unknown]
  - Calcium deficiency [Unknown]
  - Hormone therapy [Unknown]
  - Hypertension [Unknown]
  - Steroid therapy [Unknown]
  - Arthritis [Unknown]
  - Open reduction of fracture [Unknown]
  - Fall [Unknown]
